FAERS Safety Report 7537169-6 (Version None)
Quarter: 2011Q2

REPORT INFORMATION
  Report Type: 
  Country: None (occurrence: None)
  Receive Date: 20110603
  Receipt Date: 20110520
  Transmission Date: 20111010
  Serious: Yes (Hospitalization)
  Sender: FDA-Public Use
  Company Number: DSJ-2011-06655

PATIENT
  Age: 68 Year
  Sex: Male

DRUGS (10)
  1. ALLOPURINOL [Concomitant]
  2. ALOSENN (SENNA ALEXANDRINA) [Concomitant]
  3. FERROUS CITRATE [Concomitant]
  4. JUSO (SODIUM BICARBONATE) [Concomitant]
  5. LEVOFLOXACIN [Concomitant]
  6. ARGAMATE (CALCIUM POLYSTYRENE SULFONATE) (GEL) [Concomitant]
  7. OLMESARTAN MEDOXOMIL [Suspect]
     Indication: ESSENTIAL HYPERTENSION
     Dosage: 5 MG, PER ORAL
     Route: 048
     Dates: start: 20100930, end: 20110317
  8. LASIX [Suspect]
     Indication: PRODUCT USED FOR UNKNOWN INDICATION
     Dosage: 80 MG
  9. CONIEL (BENIDIPINE HYDROCHLORIDE) [Concomitant]
  10. ASPIRIN [Concomitant]

REACTIONS (3)
  - HYPOTENSION [None]
  - RENAL DISORDER [None]
  - NASOPHARYNGITIS [None]
